FAERS Safety Report 5921536-8 (Version None)
Quarter: 2008Q4

REPORT INFORMATION
  Report Type: 
  Country: None (occurrence: None)
  Receive Date: 20081017
  Receipt Date: 20081006
  Transmission Date: 20090506
  Serious: Yes (Hospitalization)
  Sender: FDA-Public Use
  Company Number: US-RB-005172-08

PATIENT
  Age: 46 Year
  Sex: Female

DRUGS (2)
  1. MAX STRENGTH MUCINEX DM [Suspect]
     Route: 048
     Dates: start: 20081003
  2. ANTIBIOTIC [Concomitant]

REACTIONS (2)
  - HALLUCINATION [None]
  - SPEECH DISORDER [None]
